FAERS Safety Report 4547183-0 (Version None)
Quarter: 2005Q1

REPORT INFORMATION
  Report Type: 
  Country: None (occurrence: None)
  Receive Date: 20050105
  Receipt Date: 20041223
  Transmission Date: 20050727
  Serious: Yes (Other)
  Sender: FDA-Public Use
  Company Number: 2004091136

PATIENT
  Age: 57 Year
  Sex: Female

DRUGS (3)
  1. NARDIL [Suspect]
     Indication: DEPRESSION
     Dosage: 30 MG (15 MG, 2 IN 1 D), ORAL
     Route: 048
  2. ESTROGENS (ESTROGENS) [Concomitant]
  3. PROGESTERONE (PROGESTEONE) [Concomitant]

REACTIONS (6)
  - ANXIETY [None]
  - DYSPEPSIA [None]
  - HYSTERECTOMY [None]
  - NAUSEA [None]
  - PHARMACEUTICAL PRODUCT COMPLAINT [None]
  - VAGINAL HAEMORRHAGE [None]
